APPROVED DRUG PRODUCT: RAVICTI
Active Ingredient: GLYCEROL PHENYLBUTYRATE
Strength: 1.1GM/ML
Dosage Form/Route: LIQUID;ORAL
Application: N203284 | Product #001 | TE Code: AA
Applicant: HORIZON THERAPEUTICS US HOLDING LLC
Approved: Feb 1, 2013 | RLD: Yes | RS: Yes | Type: RX

PATENTS:
Patent 9962359 | Expires: Sep 22, 2030
Patent 9561197 | Expires: Sep 22, 2030
Patent 10183003 | Expires: Sep 22, 2030
Patent 10183002 | Expires: Sep 22, 2030
Patent 10183004 | Expires: Sep 22, 2030
Patent 8404215 | Expires: Mar 9, 2032
Patent 8642012 | Expires: Sep 22, 2030
Patent 10045959 | Expires: Sep 22, 2030
Patent 9999608 | Expires: Sep 22, 2030
Patent 9326966 | Expires: Sep 22, 2030
Patent 10668040 | Expires: Sep 22, 2030
Patent 10183005 | Expires: Sep 22, 2030
Patent 10183006 | Expires: Sep 22, 2030
Patent 10045958 | Expires: Sep 22, 2030
Patent 9254278 | Expires: Sep 22, 2030